FAERS Safety Report 6790564-5 (Version None)
Quarter: 2010Q2

REPORT INFORMATION
  Report Type: 
  Country: None (occurrence: None)
  Receive Date: 20100624
  Receipt Date: 20100614
  Transmission Date: 20101027
  Serious: Yes (Death)
  Sender: FDA-Public Use
  Company Number: PL-BAXTER-2010BH016094

PATIENT
  Sex: Female

DRUGS (4)
  1. DIANEAL PD-1 [Suspect]
     Indication: PERITONEAL DIALYSIS
     Route: 033
     Dates: end: 20100614
  2. DIANEAL PD-1 [Suspect]
     Route: 033
     Dates: end: 20100614
  3. DIANEAL PD-1 [Suspect]
     Route: 033
     Dates: end: 20100614
  4. DIANEAL PD-1 [Suspect]
     Route: 033
     Dates: end: 20100614

REACTIONS (1)
  - DEATH [None]
